FAERS Safety Report 20876718 (Version 1)
Quarter: 2022Q2

REPORT INFORMATION
  Report Type: Spontaneous
  Country: NL (occurrence: NL)
  Receive Date: 20220526
  Receipt Date: 20220526
  Transmission Date: 20220720
  Serious: Yes (Other)
  Sender: FDA-Public Use
  Company Number: None

PATIENT
  Sex: Female
  Weight: 68 kg

DRUGS (5)
  1. OXYCODONE [Suspect]
     Active Substance: OXYCODONE
     Indication: Pain
     Dosage: 5 MILLIGRAM DAILY; 1X PER DAY/EVENING, BRAND NAME NOT SPECIFIED, STRENGTH: 5 MG, THERAPY END DATE :
     Dates: start: 202204
  2. ZINC [Concomitant]
     Active Substance: ZINC
     Dosage: THE DAILY ALLOWANCE. ARNICA 20 GRAINS, THERAPY START DATE AND END DATE : ASKU
  3. ASCORBIC ACID [Concomitant]
     Active Substance: ASCORBIC ACID
     Dosage: THE DAILY ALLOWANCE. ARNICA 20 GRAINS, ASCORBINEZUUR / BRAND NAME NOT SPECIFIED, THERAPY START DATE
  4. CHOLECALCIFEROL [Concomitant]
     Active Substance: CHOLECALCIFEROL
     Dosage: THE DAILY ALLOWANCE. ARNICA 20 GRAINS, COLECALCIFEROL / BRAND NAME NOT SPECIFIED, THERAPY START DATE
  5. VSM ARNICA [Concomitant]
     Dosage: THE DAILY ALLOWANCE. ARNICA 20 GRAINS, VSM  ARNICA C  30 GLOBULES, THERAPY START DATE AND END DATE :

REACTIONS (4)
  - Bradycardia [Not Recovered/Not Resolved]
  - Pruritus [Not Recovered/Not Resolved]
  - Hypopnoea [Not Recovered/Not Resolved]
  - Dyspnoea [Not Recovered/Not Resolved]
